FAERS Safety Report 8127074-9 (Version None)
Quarter: 2011Q4

REPORT INFORMATION
  Report Type: 
  Country: None (occurrence: None)
  Receive Date: 20111227
  Receipt Date: 20111117
  Transmission Date: 20120403
  Serious: No
  Sender: FDA-Public Use
  Company Number: PHHY2011US03061

PATIENT
  Age: 51 Year
  Sex: Female

DRUGS (2)
  1. GILENYA [Suspect]
     Indication: MULTIPLE SCLEROSIS
     Dosage: 0.5MG, QD, ORAL; 0.5 MG, BID, ORAL
     Route: 048
     Dates: start: 20101228
  2. GILENYA [Suspect]
     Indication: MULTIPLE SCLEROSIS
     Dosage: 0.5MG, QD, ORAL; 0.5 MG, BID, ORAL
     Route: 048
     Dates: start: 20110112, end: 20110112

REACTIONS (4)
  - MUSCLE TWITCHING [None]
  - FATIGUE [None]
  - OVERDOSE [None]
  - TREMOR [None]
